FAERS Safety Report 14098579 (Version 2)
Quarter: 2017Q4

REPORT INFORMATION
  Report Type: Spontaneous
  Country: CH (occurrence: CH)
  Receive Date: 20171017
  Receipt Date: 20171122
  Transmission Date: 20180321
  Serious: Yes (Disabling, Other)
  Sender: FDA-Public Use
  Company Number: PHHY2017CH151022

PATIENT
  Age: 74 Year
  Sex: Male

DRUGS (15)
  1. METO ZEROK [Suspect]
     Active Substance: METOPROLOL SUCCINATE
     Dosage: 4-6MG
     Route: 065
     Dates: start: 2017
  2. OMEPRAZOLE. [Concomitant]
     Active Substance: OMEPRAZOLE
     Indication: PRODUCT USED FOR UNKNOWN INDICATION
     Route: 065
  3. DAFALGAN [Concomitant]
     Active Substance: ACETAMINOPHEN
     Indication: PRODUCT USED FOR UNKNOWN INDICATION
     Route: 065
  4. LOSARTAN. [Suspect]
     Active Substance: LOSARTAN
     Dosage: 75 MG, UNK
     Route: 065
     Dates: start: 2017
  5. METO ZEROK [Suspect]
     Active Substance: METOPROLOL SUCCINATE
     Dosage: 12.5 MG, Q48H
     Route: 065
  6. METO ZEROK [Suspect]
     Active Substance: METOPROLOL SUCCINATE
     Dosage: 6 MG, QD
     Route: 065
     Dates: start: 201711
  7. PULMICORT TURBUHALER [Concomitant]
     Active Substance: BUDESONIDE
     Indication: PRODUCT USED FOR UNKNOWN INDICATION
     Route: 065
  8. METO ZEROK [Suspect]
     Active Substance: METOPROLOL SUCCINATE
     Dosage: 12.5 MG, Q48H
     Route: 065
     Dates: start: 201710
  9. SINTROM [Concomitant]
     Active Substance: ACENOCOUMAROL
     Indication: PRODUCT USED FOR UNKNOWN INDICATION
     Route: 065
  10. VENTOLIN [Concomitant]
     Active Substance: ALBUTEROL SULFATE
     Indication: PRODUCT USED FOR UNKNOWN INDICATION
     Route: 065
  11. LOSARTAN. [Suspect]
     Active Substance: LOSARTAN
     Dosage: 75 MG, UNK
     Route: 065
     Dates: start: 2016
  12. LOSARTAN. [Suspect]
     Active Substance: LOSARTAN
     Dosage: 75 MG, QD
     Route: 065
  13. LOSARTAN. [Suspect]
     Active Substance: LOSARTAN
     Indication: HYPERTENSION
     Dosage: 100 MG, UNK
     Route: 065
     Dates: start: 2015
  14. METO ZEROK [Suspect]
     Active Substance: METOPROLOL SUCCINATE
     Indication: HYPERTENSION
     Dosage: 12.5 MG, UNK
     Route: 065
     Dates: start: 2016
  15. TEMESTA (LORAZEPAM) [Concomitant]
     Active Substance: LORAZEPAM
     Indication: PRODUCT USED FOR UNKNOWN INDICATION
     Route: 065

REACTIONS (7)
  - Memory impairment [Unknown]
  - Nightmare [Unknown]
  - Asthenia [Unknown]
  - Fatigue [Unknown]
  - Bradycardia [Unknown]
  - Disturbance in attention [Unknown]
  - Sleep disorder [Unknown]

NARRATIVE: CASE EVENT DATE: 2015
